FAERS Safety Report 25980221 (Version 1)
Quarter: 2025Q4

REPORT INFORMATION
  Report Type: Spontaneous
  Country: EU (occurrence: EU)
  Receive Date: 20251030
  Receipt Date: 20251030
  Transmission Date: 20260118
  Serious: Yes (Other)
  Sender: MERCK SHARP & DOHME LLC
  Company Number: None

PATIENT
  Age: 58 Year
  Sex: Male
  Weight: 84 kg

DRUGS (10)
  1. CANCIDAS [Suspect]
     Active Substance: CASPOFUNGIN ACETATE
     Dosage: DOSE DESCRIPTION : 70 MILLIGRAM, QD?DAILY DOSE : 70 MILLIGRAM?CONCENTRATION: 70 MILLIGRAM?REGIMEN...
     Route: 042
     Dates: start: 20200419, end: 20200421
  2. CEFOTAXIME SODIUM [Concomitant]
     Active Substance: CEFOTAXIME SODIUM
     Indication: Lung disorder
     Dosage: DOSE DESCRIPTION : 3 GRAM, QD?DAILY DOSE : 3 GRAM?REGIMEN DOSE : 24  GRAM
     Route: 042
     Dates: start: 20200403, end: 20200410
  3. PIPERACILLIN SODIUM\TAZOBACTAM SODIUM [Suspect]
     Active Substance: PIPERACILLIN SODIUM\TAZOBACTAM SODIUM
     Indication: C-reactive protein increased
     Dosage: DOSE DESCRIPTION : 16 GRAM, QD?DAILY DOSE : 16 GRAM?REGIMEN DOSE : 80  GRAM
     Route: 042
     Dates: start: 20200411, end: 20200415
  4. MEROPENEM [Suspect]
     Active Substance: MEROPENEM
     Dosage: DOSE DESCRIPTION : 6 GRAM, QD?DAILY DOSE : 6 GRAM?CONCENTRATION: 1 GRAM?REGIMEN DOSE : 42  GRAM
     Route: 042
     Dates: start: 20200415, end: 20200421
  5. LINEZOLID [Concomitant]
     Active Substance: LINEZOLID
     Indication: C-reactive protein increased
     Dosage: DOSE DESCRIPTION : 1200 MILLIGRAM, QD
     Route: 042
     Dates: start: 20200411, end: 20200418
  6. AZITHROMYCIN [Concomitant]
     Active Substance: AZITHROMYCIN
     Indication: Lung disorder
     Dosage: DOSE DESCRIPTION : 500 MILLIGRAM, QD?DAILY DOSE : 500 MILLIGRAM?CONCENTRATION: 250 MILLIGRAM?REGI...
     Route: 048
     Dates: start: 20200403, end: 20200408
  7. VALACYCLOVIR [Suspect]
     Active Substance: VALACYCLOVIR HYDROCHLORIDE
     Dosage: DOSE DESCRIPTION : 1000 MILLIGRAM, QD?CONCENTRATION: 500 MILLIGRAM
     Route: 048
     Dates: start: 20200415, end: 20200421
  8. ENOXAPARIN SODIUM [Concomitant]
     Active Substance: ENOXAPARIN SODIUM
     Dosage: DOSE DESCRIPTION : UNK
  9. AMPHOTERICIN B [Concomitant]
     Active Substance: AMPHOTERICIN B
     Dosage: DOSE DESCRIPTION : 45 MILLILITER, QD?DAILY DOSE : 45 MILLILITER?REGIMEN DOSE : 405  MILLILITER
     Route: 048
     Dates: start: 20200415, end: 20200423
  10. PLAQUENIL [Concomitant]
     Active Substance: HYDROXYCHLOROQUINE SULFATE
     Dosage: DOSE DESCRIPTION : 200 MILLIGRAM
     Route: 048
     Dates: start: 20200404, end: 20200409

REACTIONS (2)
  - Eosinophilia [Recovered/Resolved]
  - Rash maculo-papular [Recovered/Resolved]

NARRATIVE: CASE EVENT DATE: 20200415
